FAERS Safety Report 6191333-X (Version None)
Quarter: 2009Q2

REPORT INFORMATION
  Report Type: 
  Country: None (occurrence: None)
  Receive Date: 20090515
  Receipt Date: 20090505
  Transmission Date: 20091009
  Serious: Yes (Other)
  Sender: FDA-Public Use
  Company Number: US-BAYER-200833559NA

PATIENT
  Age: 30 Year
  Sex: Female
  Weight: 53 kg

DRUGS (2)
  1. MIRENA [Suspect]
     Indication: DRUG USE FOR UNKNOWN INDICATION
     Dosage: 20 MCG/DAY CONTINUOUS
     Route: 015
     Dates: start: 20030101
  2. DEPO PREVARA [Concomitant]

REACTIONS (5)
  - BREAST TENDERNESS [None]
  - COMPLICATION OF DEVICE REMOVAL [None]
  - IUD MIGRATION [None]
  - PRECANCEROUS CELLS PRESENT [None]
  - UTERINE CERVIX STENOSIS [None]
